FAERS Safety Report 10480707 (Version 1)
Quarter: 2014Q3

REPORT INFORMATION
  Report Type: Spontaneous
  Country: US (occurrence: US)
  Receive Date: 20140929
  Receipt Date: 20140929
  Transmission Date: 20150326
  Serious: No
  Sender: FDA-Public Use
  Company Number: US-PFIZER INC-2014261609

PATIENT
  Age: 38 Year
  Sex: Male

DRUGS (3)
  1. ADVIL [Suspect]
     Active Substance: IBUPROFEN
     Dosage: UNK
  2. ASPIRIN. [Suspect]
     Active Substance: ASPIRIN
     Dosage: UNK
  3. TYLENOL [Suspect]
     Active Substance: ACETAMINOPHEN
     Dosage: UNK

REACTIONS (1)
  - Drug hypersensitivity [Unknown]
